FAERS Safety Report 14627055 (Version 2)
Quarter: 2018Q1

REPORT INFORMATION
  Report Type: Spontaneous
  Country: JP (occurrence: JP)
  Receive Date: 20180312
  Receipt Date: 20180314
  Transmission Date: 20180509
  Serious: Yes (Hospitalization)
  Sender: FDA-Public Use
  Company Number: JP-SA-2018SA068863

PATIENT
  Age: 43 Year
  Sex: Female
  Weight: 53.4 kg

DRUGS (8)
  1. DOCETAXEL. [Suspect]
     Active Substance: DOCETAXEL
     Indication: BREAST CANCER STAGE III
     Route: 065
  2. FLUOROURACIL. [Suspect]
     Active Substance: FLUOROURACIL
     Indication: BREAST CANCER STAGE III
     Dosage: 700 MG/BODY?FEC REGIMEN
     Route: 065
  3. EPIRUBICIN [Suspect]
     Active Substance: EPIRUBICIN
     Indication: BREAST CANCER STAGE III
     Dosage: 140 MG/BODY?FEC REGIMEN
     Route: 065
  4. TRASTUZUMAB. [Suspect]
     Active Substance: TRASTUZUMAB
     Indication: BREAST CANCER STAGE III
     Dosage: 300 MG/BODY?DOC+HER REGIMEN
     Route: 065
  5. CYCLOPHOSPHAMIDE. [Suspect]
     Active Substance: CYCLOPHOSPHAMIDE
     Indication: BREAST CANCER STAGE III
     Dosage: 700 MG/BODY?FEC REGIMEN
     Route: 065
  6. DOCETAXEL. [Suspect]
     Active Substance: DOCETAXEL
     Indication: BREAST CANCER STAGE III
     Route: 065
  7. DOCETAXEL. [Suspect]
     Active Substance: DOCETAXEL
     Indication: BREAST CANCER STAGE III
     Dosage: 110 MG/BODY?DOC+HER REGIMEN
     Route: 065
  8. TRASTUZUMAB. [Suspect]
     Active Substance: TRASTUZUMAB
     Indication: BREAST CANCER STAGE III
     Dosage: 300 MG/BODY?DOC+HER REGIMEN
     Route: 065

REACTIONS (14)
  - Pyrexia [Recovered/Resolved]
  - White blood cell count increased [Recovered/Resolved]
  - Appendicitis [Recovered/Resolved]
  - Abdominal pain lower [Recovered/Resolved]
  - Tenderness [Recovered/Resolved]
  - C-reactive protein increased [Recovered/Resolved]
  - Diarrhoea [Recovered/Resolved]
  - Appendicitis perforated [Recovered/Resolved]
  - Nausea [Recovered/Resolved]
  - Necrosis [Recovered/Resolved]
  - Gastroenteritis [Recovered/Resolved]
  - Pelvic abscess [Recovered/Resolved]
  - Bone marrow failure [Unknown]
  - Leukopenia [Unknown]
